FAERS Safety Report 7047327-5 (Version None)
Quarter: 2010Q4

REPORT INFORMATION
  Report Type: 
  Country: None (occurrence: None)
  Receive Date: 20101015
  Receipt Date: 20101004
  Transmission Date: 20110411
  Serious: Yes (Hospitalization)
  Sender: FDA-Public Use
  Company Number: PHHY2010US65775

PATIENT
  Sex: Male
  Weight: 58 kg

DRUGS (5)
  1. EXJADE [Suspect]
     Indication: IRON METABOLISM DISORDER
     Dosage: 1125  MG DAILY
     Route: 048
     Dates: start: 20100312
  2. BACTRIM [Concomitant]
  3. LEUCOVORIN CALCIUM [Concomitant]
  4. PREDNISONE [Concomitant]
  5. CYCLOSPORINE MODIFIED [Concomitant]

REACTIONS (2)
  - LUNG INFECTION [None]
  - PNEUMONIA [None]
